FAERS Safety Report 7624226-9 (Version None)
Quarter: 2011Q3

REPORT INFORMATION
  Report Type: 
  Country: None (occurrence: None)
  Receive Date: 20110719
  Receipt Date: 20110719
  Transmission Date: 20111222
  Serious: No
  Sender: FDA-Public Use
  Company Number: None

PATIENT
  Age: 52 Year
  Sex: Male

DRUGS (6)
  1. MORPHINE [Concomitant]
  2. HYDROMORPHONE HCL [Concomitant]
  3. REVLIMID [Suspect]
     Indication: MULTIPLE MYELOMA
     Dosage: 10MG DAILY ORALLY
     Route: 048
  4. COLCHINE [Concomitant]
  5. DIAZEPAM [Concomitant]
  6. OMEPRAZOLE [Concomitant]

REACTIONS (6)
  - CHILLS [None]
  - STEM CELL TRANSPLANT [None]
  - RENAL FAILURE [None]
  - DRUG INTOLERANCE [None]
  - PYREXIA [None]
  - DIALYSIS [None]
